FAERS Safety Report 12117989 (Version 1)
Quarter: 2016Q1

REPORT INFORMATION
  Report Type: Spontaneous
  Country: JP (occurrence: JP)
  Receive Date: 20160226
  Receipt Date: 20160226
  Transmission Date: 20160526
  Serious: Yes (Other)
  Sender: FDA-Public Use
  Company Number: JP-AMGEN-JPNSP2016023811

PATIENT
  Age: 46 Year
  Sex: Female

DRUGS (2)
  1. GRAN [Suspect]
     Active Substance: FILGRASTIM
     Dosage: UNK UNK, QD
     Route: 058
     Dates: start: 20140916, end: 20140917
  2. GRAN [Suspect]
     Active Substance: FILGRASTIM
     Indication: PRODUCT USED FOR UNKNOWN INDICATION
     Dosage: 300 MCG, BID
     Route: 058
     Dates: start: 20140913

REACTIONS (1)
  - Hepatic function abnormal [Recovered/Resolved]

NARRATIVE: CASE EVENT DATE: 20140917
